FAERS Safety Report 17721471 (Version 3)
Quarter: 2021Q2

REPORT INFORMATION
  Report Type: Spontaneous
  Country: FR (occurrence: FR)
  Receive Date: 20200429
  Receipt Date: 20210427
  Transmission Date: 20210716
  Serious: Yes (Life-Threatening)
  Sender: FDA-Public Use
  Company Number: FR-TEVA-2020-FR-1227414

PATIENT
  Age: 43 Year
  Sex: Male

DRUGS (3)
  1. AZITHROMYCINE ANHYDRE [Suspect]
     Active Substance: AZITHROMYCIN ANHYDROUS
     Indication: CORONAVIRUS INFECTION
     Dosage: 250 MILLIGRAM
     Route: 048
     Dates: start: 20200325
  2. NIVAQUINE 100 MG, COMPRIME SECABLE [Suspect]
     Active Substance: CHLOROQUINE SULFATE
     Dosage: UNIT DOSE :200 MG ,2?3 TABS PER DAY
     Route: 048
     Dates: start: 20200325
  3. PLAQUENIL [Suspect]
     Active Substance: HYDROXYCHLOROQUINE SULFATE
     Indication: CORONAVIRUS INFECTION
     Dosage: 2?3 CP PER DAY:400 MILLIGRAM, PLAQUENIL 200 MG, COMPRIME ENROBE
     Route: 048
     Dates: start: 20200325

REACTIONS (1)
  - Cardio-respiratory arrest [Recovering/Resolving]

NARRATIVE: CASE EVENT DATE: 20200404
